FAERS Safety Report 9090834 (Version 1)
Quarter: 2013Q1

REPORT INFORMATION
  Report Type: Report from Study
  Country: JP (occurrence: JP)
  Receive Date: 20130131
  Receipt Date: 20130131
  Transmission Date: 20140127
  Serious: Yes (Other)
  Sender: FDA-Public Use
  Company Number: JP-ROCHE-1179241

PATIENT
  Sex: 0

DRUGS (5)
  1. BEVACIZUMAB [Suspect]
     Indication: COLORECTAL CANCER
     Route: 042
  2. BEVACIZUMAB [Suspect]
     Route: 065
  3. IRINOTECAN [Suspect]
     Indication: COLORECTAL CANCER
     Dosage: DAY 1 NAD DAY 8
     Route: 042
  4. GIMERACIL\OTERACIL\TEGAFUR [Suspect]
     Indication: COLORECTAL CANCER
     Route: 048
  5. GIMERACIL\OTERACIL\TEGAFUR [Suspect]
     Route: 048

REACTIONS (8)
  - Leukopenia [Unknown]
  - Neutropenia [Unknown]
  - Diarrhoea [Unknown]
  - Pneumonia [Unknown]
  - Thrombocytopenia [Unknown]
  - Decreased appetite [Unknown]
  - Enterocolitis infectious [Unknown]
  - Blood creatinine increased [Unknown]
